FAERS Safety Report 6078385-2 (Version None)
Quarter: 2009Q1

REPORT INFORMATION
  Report Type: 
  Country: None (occurrence: None)
  Receive Date: 20090213
  Receipt Date: 20090130
  Transmission Date: 20090719
  Serious: Yes (Life-Threatening, Hospitalization, Other)
  Sender: FDA-Public Use
  Company Number: JP-PFIZER INC-2008073234

PATIENT

DRUGS (12)
  1. AMLODIN [Suspect]
     Indication: HYPERTENSION
     Dosage: 5 MG, UNK
     Route: 048
     Dates: start: 20030101, end: 20080415
  2. ENALAPRIL MALEATE [Suspect]
     Indication: HYPERTENSION
     Dosage: 5 MG, UNK
     Route: 048
     Dates: start: 20080416, end: 20080815
  3. MUCODYNE [Concomitant]
     Dosage: 1500 MG, UNK
     Route: 048
  4. UNIPHYL [Concomitant]
     Dosage: 200 MG, UNK
     Route: 048
     Dates: end: 20080815
  5. URSO 250 [Concomitant]
     Indication: CHOLELITHIASIS
     Dosage: 200 MG, 1X/DAY
     Route: 048
     Dates: start: 19890101, end: 20080815
  6. ASPIRIN [Concomitant]
     Indication: CEREBRAL INFARCTION
     Route: 048
     Dates: start: 20031201, end: 20080815
  7. CLARITIN [Concomitant]
     Indication: RHINITIS ALLERGIC
     Dosage: 10 MG, UNK
     Route: 048
     Dates: start: 20070801, end: 20080815
  8. CLARITIN [Concomitant]
     Indication: ASTHMA
  9. MONTELUKAST SODIUM [Concomitant]
     Dosage: 10 MG, UNK
     Route: 048
     Dates: start: 20070801, end: 20080815
  10. INTAL [Concomitant]
     Dates: start: 20070801
  11. PULMICORT-100 [Concomitant]
     Indication: ASTHMA
     Dosage: 200 UG, 1X/DAY
     Route: 055
     Dates: start: 20070801
  12. MOHRUS [Concomitant]
     Indication: ARTHRALGIA
     Route: 061
     Dates: start: 19940101, end: 20080815

REACTIONS (7)
  - ALLERGIC GRANULOMATOUS ANGIITIS [None]
  - ANOREXIA [None]
  - ASTHMA [None]
  - LEUKOCYTOCLASTIC VASCULITIS [None]
  - MALAISE [None]
  - RHINITIS [None]
  - TUBULOINTERSTITIAL NEPHRITIS [None]
